FAERS Safety Report 16365189 (Version 2)
Quarter: 2019Q3

REPORT INFORMATION
  Report Type: Spontaneous
  Country: JP (occurrence: JP)
  Receive Date: 20190529
  Receipt Date: 20190730
  Transmission Date: 20191004
  Serious: Yes (Hospitalization, Other)
  Sender: FDA-Public Use
  Company Number: JP-VIIV HEALTHCARE LIMITED-JP2019JPN094778

PATIENT
  Age: 42 Year
  Sex: Male

DRUGS (7)
  1. VIREAD [Concomitant]
     Active Substance: TENOFOVIR DISOPROXIL FUMARATE
     Indication: HIV INFECTION
     Dosage: 300 MG, QD
     Dates: start: 20170928, end: 201809
  2. NEXIUM CAPSULE [Concomitant]
     Dosage: 20 MG, QD
     Dates: start: 20160908
  3. VEMLIDY [Concomitant]
     Active Substance: TENOFOVIR ALAFENAMIDE FUMARATE
     Indication: HEPATITIS B
     Dosage: 1 DF, QD
     Dates: start: 20180928
  4. TIVICAY [Suspect]
     Active Substance: DOLUTEGRAVIR SODIUM
     Indication: HIV INFECTION
     Dosage: 50 MG, QD
     Route: 048
     Dates: start: 20170928
  5. FERROUS CITRATE NA TABLET [Concomitant]
     Indication: IRON DEFICIENCY ANAEMIA
     Dosage: 50 MG, BID
     Dates: start: 20170427, end: 20171025
  6. PREZCOBIX [Concomitant]
     Active Substance: COBICISTAT\DARUNAVIR ETHANOLATE
     Indication: HIV INFECTION
     Dosage: 1 DF, QD
     Dates: start: 20170928
  7. GENVOYA [Concomitant]
     Active Substance: COBICISTAT\ELVITEGRAVIR\EMTRICITABINE\TENOFOVIR ALAFENAMIDE FUMARATE
     Indication: HIV INFECTION
     Dosage: UNK, QD
     Dates: start: 20161006, end: 20170927

REACTIONS (2)
  - Lymphoma [Unknown]
  - Plasmablastic lymphoma [Not Recovered/Not Resolved]

NARRATIVE: CASE EVENT DATE: 20190508
